FAERS Safety Report 7278159-0 (Version None)
Quarter: 2011Q1

REPORT INFORMATION
  Report Type: 
  Country: None (occurrence: None)
  Receive Date: 20110207
  Receipt Date: 20110201
  Transmission Date: 20110831
  Serious: Yes (Death, Life-Threatening, Hospitalization, Disabling)
  Sender: FDA-Public Use
  Company Number: A0907428A

PATIENT
  Age: 68 Year
  Sex: Male
  Weight: 102.3 kg

DRUGS (7)
  1. INSULIN [Concomitant]
  2. WELLBUTRIN [Concomitant]
  3. OXALIPLATIN [Concomitant]
  4. 5FU [Concomitant]
  5. LEUCOVORIN CALCIUM [Concomitant]
  6. PROTONIX [Concomitant]
  7. ARIXTRA [Suspect]
     Indication: DEEP VEIN THROMBOSIS
     Dosage: 7.5MG PER DAY
     Route: 058
     Dates: start: 20100525, end: 20110115

REACTIONS (12)
  - PERFORMANCE STATUS DECREASED [None]
  - ABDOMINAL PAIN [None]
  - DRUG INTOLERANCE [None]
  - CARDIAC ARREST [None]
  - DRUG INEFFECTIVE [None]
  - ASTHENIA [None]
  - PANCREATIC CARCINOMA METASTATIC [None]
  - FATIGUE [None]
  - DECREASED APPETITE [None]
  - DEATH [None]
  - DIABETES MELLITUS [None]
  - CORONARY ARTERY DISEASE [None]
